FAERS Safety Report 22287806 (Version 2)
Quarter: 2023Q2

REPORT INFORMATION
  Report Type: Spontaneous
  Country: JP (occurrence: None)
  Receive Date: 20230505
  Receipt Date: 20230511
  Transmission Date: 20230722
  Serious: Yes (Other)
  Sender: FDA-Public Use
  Company Number: 2023A101415

PATIENT
  Sex: Female

DRUGS (3)
  1. NEXIUM [Suspect]
     Active Substance: ESOMEPRAZOLE MAGNESIUM
     Dosage: DOSE UNKNOWN
     Route: 048
     Dates: start: 2023
  2. TEPRENONE [Concomitant]
     Active Substance: TEPRENONE
     Dosage: DOSE UNKNOWN
     Route: 048
     Dates: start: 2023
  3. FLOPROPIONE [Concomitant]
     Active Substance: FLOPROPIONE
     Dosage: DOSE UNKNOWN
     Route: 048
     Dates: start: 2023

REACTIONS (7)
  - Gamma-glutamyltransferase increased [Not Recovered/Not Resolved]
  - Yellow skin [Not Recovered/Not Resolved]
  - Chromaturia [Not Recovered/Not Resolved]
  - Urine bilirubin increased [Not Recovered/Not Resolved]
  - Alanine aminotransferase increased [Not Recovered/Not Resolved]
  - Aspartate aminotransferase increased [Not Recovered/Not Resolved]
  - Product dose omission issue [Unknown]

NARRATIVE: CASE EVENT DATE: 20230101
